FAERS Safety Report 23575763 (Version 1)
Quarter: 2024Q1

REPORT INFORMATION
  Report Type: Spontaneous
  Country: US (occurrence: US)
  Receive Date: 20240228
  Receipt Date: 20240228
  Transmission Date: 20240410
  Serious: No
  Sender: FDA-Public Use
  Company Number: US-PFIZER INC-202400051456

PATIENT
  Age: 80 Year
  Sex: Female

DRUGS (5)
  1. IBRANCE [Suspect]
     Active Substance: PALBOCICLIB
     Dosage: TAKE 1 TABLET (100MG) DAILY FOR 21 DAYS ON, THEN 7 DAYS OFF(21 DAY CYCLE)
     Route: 048
     Dates: start: 20240119
  2. LETROZOLE [Concomitant]
     Active Substance: LETROZOLE
     Dosage: UNK
  3. CIPROFLOXACIN [Concomitant]
     Active Substance: CIPROFLOXACIN
     Dosage: UNK
  4. TRAVOPROST [Concomitant]
     Active Substance: TRAVOPROST
     Dosage: UNK
  5. TRAMADOL [Concomitant]
     Active Substance: TRAMADOL\TRAMADOL HYDROCHLORIDE
     Dosage: UNK

REACTIONS (2)
  - Cough [Recovered/Resolved]
  - Nasal congestion [Recovered/Resolved]
